FAERS Safety Report 7552819-6 (Version None)
Quarter: 2011Q2

REPORT INFORMATION
  Report Type: 
  Country: None (occurrence: None)
  Receive Date: 20110616
  Receipt Date: 20110613
  Transmission Date: 20111010
  Serious: Yes (Hospitalization)
  Sender: FDA-Public Use
  Company Number: US-ROXANE LABORATORIES, INC.-2011-RO-00809RO

PATIENT
  Age: 13 Year
  Sex: Male

DRUGS (9)
  1. SEVOFLURANE [Suspect]
     Indication: GENERAL ANAESTHESIA
  2. VECURONIUM BROMIDE [Suspect]
     Indication: GENERAL ANAESTHESIA
  3. ANTICHOLINESTERASE [Suspect]
     Indication: ANAESTHESIA REVERSAL
  4. ANTICHOLINERGIC [Suspect]
     Indication: ANAESTHESIA REVERSAL
  5. POTASSIUM SUPPLEMENTS [Suspect]
  6. NADOLOL [Suspect]
     Indication: ARRHYTHMIA PROPHYLAXIS
     Dosage: 40 MG
  7. ONDANSETRON [Suspect]
     Indication: PROPHYLAXIS OF NAUSEA AND VOMITING
  8. DESFLURANE [Suspect]
     Indication: GENERAL ANAESTHESIA
  9. MEXILETINE HYDROCHLORIDE [Suspect]
     Indication: ARRHYTHMIA PROPHYLAXIS
     Dosage: 300 MG

REACTIONS (2)
  - VENTRICULAR TACHYCARDIA [None]
  - EXTRASYSTOLES [None]
